FAERS Safety Report 10101418 (Version 1)
Quarter: 2014Q2

REPORT INFORMATION
  Report Type: Spontaneous
  Country: US (occurrence: US)
  Receive Date: 20140424
  Receipt Date: 20140424
  Transmission Date: 20141212
  Serious: Yes (Other)
  Sender: FDA-Public Use
  Company Number: US-BAYER-2014-056590

PATIENT
  Age: 26 Year
  Sex: Female
  Weight: 76.19 kg

DRUGS (2)
  1. BEYAZ [Suspect]
  2. MOTRIN [Concomitant]

REACTIONS (1)
  - Deep vein thrombosis [None]
